FAERS Safety Report 9374506 (Version 1)
Quarter: 2013Q2

REPORT INFORMATION
  Report Type: Spontaneous
  Country: US (occurrence: US)
  Receive Date: 20130628
  Receipt Date: 20130628
  Transmission Date: 20140414
  Serious: No
  Sender: FDA-Public Use
  Company Number: US-BAYER-2013-079343

PATIENT
  Sex: Female

DRUGS (3)
  1. CIPRO [Suspect]
  2. VIGAMOX [Concomitant]
     Dosage: UNK
     Dates: start: 20130616
  3. VIGAMOX [Concomitant]

REACTIONS (1)
  - Rash generalised [None]
